FAERS Safety Report 18724343 (Version 1)
Quarter: 2021Q1

REPORT INFORMATION
  Report Type: Spontaneous
  Country: US (occurrence: US)
  Receive Date: 20210108
  Receipt Date: 20210108
  Transmission Date: 20210419
  Serious: Yes (Hospitalization)
  Sender: FDA-Public Use
  Company Number: None

PATIENT
  Age: 67 Year
  Sex: Female

DRUGS (17)
  1. ALPRAZOLAM. [Concomitant]
     Active Substance: ALPRAZOLAM
  2. ATORVASTATIN [Concomitant]
     Active Substance: ATORVASTATIN
  3. NOVOLOG [Concomitant]
     Active Substance: INSULIN ASPART
  4. TRAMADOLOL [Concomitant]
  5. VITAMIN D [Concomitant]
     Active Substance: VITAMIN D NOS
  6. BACTRIUM [Concomitant]
  7. DOK [Concomitant]
     Active Substance: DOCUSATE SODIUM
  8. PREDNISONE. [Concomitant]
     Active Substance: PREDNISONE
  9. TIROSINT [Concomitant]
     Active Substance: LEVOTHYROXINE SODIUM
  10. CALCITRIOL. [Concomitant]
     Active Substance: CALCITRIOL
  11. AMLODIPINE [Concomitant]
     Active Substance: AMLODIPINE BESYLATE
  12. CARVEDILOL. [Concomitant]
     Active Substance: CARVEDILOL
  13. MYCOPHENOLATE [Concomitant]
     Active Substance: MYCOPHENOLIC ACID
  14. FAMOTIDINE. [Concomitant]
     Active Substance: FAMOTIDINE
  15. ENVARSUS XR [Suspect]
     Active Substance: TACROLIMUS
     Indication: RENAL TRANSPLANT
     Route: 048
  16. VALGANCICLOVIR. [Concomitant]
     Active Substance: VALGANCICLOVIR
  17. MAG 64 [Concomitant]

REACTIONS (1)
  - Renal haemorrhage [None]

NARRATIVE: CASE EVENT DATE: 20201230
